FAERS Safety Report 14085321 (Version 2)
Quarter: 2017Q4

REPORT INFORMATION
  Report Type: Spontaneous
  Country: US (occurrence: US)
  Receive Date: 20171013
  Receipt Date: 20171018
  Transmission Date: 20180321
  Serious: No
  Sender: FDA-Public Use
  Company Number: US-PFIZER INC-2017438316

PATIENT
  Age: 69 Year
  Sex: Female
  Weight: 65.76 kg

DRUGS (3)
  1. COLLAGEN [Interacting]
     Active Substance: COLLAGEN
     Indication: SKIN LAXITY
     Dosage: UNK
     Route: 048
     Dates: start: 2017, end: 2017
  2. COLLAGEN [Interacting]
     Active Substance: COLLAGEN
     Indication: WEIGHT DECREASED
  3. XELJANZ XR [Suspect]
     Active Substance: TOFACITINIB CITRATE
     Dosage: UNK

REACTIONS (3)
  - Pain in extremity [Recovered/Resolved]
  - Drug interaction [Recovered/Resolved]
  - Condition aggravated [Recovered/Resolved]

NARRATIVE: CASE EVENT DATE: 201709
